FAERS Safety Report 9282581 (Version 1)
Quarter: 2013Q3

REPORT INFORMATION
  Report Type: Spontaneous
  Country: US (occurrence: None)
  Receive Date: 20130509
  Receipt Date: 20130509
  Transmission Date: 20140515
  Serious: Yes (Hospitalization)
  Sender: FDA-Public Use
  Company Number: None

PATIENT
  Age: 62 Year
  Sex: Male
  Weight: 50.3 kg

DRUGS (3)
  1. LENALIDOMIDE [Suspect]
     Indication: PLASMA CELL MYELOMA
     Route: 048
     Dates: start: 20121031, end: 20121120
  2. PANOBINOSTAT [Suspect]
     Dates: start: 20121031, end: 20121118
  3. DEXAMETHASONE [Concomitant]

REACTIONS (4)
  - Pulmonary embolism [None]
  - Pneumonia [None]
  - Hypercalcaemia [None]
  - Disease progression [None]
